FAERS Safety Report 17400515 (Version 1)
Quarter: 2020Q1

REPORT INFORMATION
  Report Type: Other
  Country: GB (occurrence: GB)
  Receive Date: 20200211
  Receipt Date: 20200211
  Transmission Date: 20200409
  Serious: Yes (Disabling)
  Sender: FDA-Public Use
  Company Number: GB-STRIDES ARCOLAB LIMITED-2020SP001284

PATIENT
  Age: 36 Year
  Sex: Male
  Weight: 122 kg

DRUGS (2)
  1. PARACETAMOL [Concomitant]
     Active Substance: ACETAMINOPHEN
     Indication: HIP FRACTURE
     Dosage: 4000 MILLIGRAM, QD
     Route: 048
     Dates: start: 201905
  2. IBUPROFEN. [Suspect]
     Active Substance: IBUPROFEN
     Indication: HIP FRACTURE
     Dosage: 1200 MILLIGRAM, QD
     Route: 048
     Dates: start: 20191224, end: 20191224

REACTIONS (4)
  - Angina pectoris [Not Recovered/Not Resolved]
  - Product quality issue [Unknown]
  - Testicular pain [Not Recovered/Not Resolved]
  - Headache [Not Recovered/Not Resolved]

NARRATIVE: CASE EVENT DATE: 20191224
